FAERS Safety Report 5121963-5 (Version None)
Quarter: 2006Q4

REPORT INFORMATION
  Report Type: 
  Country: None (occurrence: None)
  Receive Date: 20061006
  Receipt Date: 20060927
  Transmission Date: 20070319
  Serious: Yes (Hospitalization)
  Sender: FDA-Public Use
  Company Number: BR-JNJFOC-20061000117

PATIENT
  Age: 23 Year
  Sex: Female
  Weight: 63 kg

DRUGS (1)
  1. ORTHO EVRA [Suspect]
     Indication: CONTRACEPTION
     Route: 062

REACTIONS (3)
  - MEDICATION ERROR [None]
  - URINARY TRACT INFECTION [None]
  - VAGINAL HAEMORRHAGE [None]
